FAERS Safety Report 9296618 (Version 2)
Quarter: 2013Q3

REPORT INFORMATION
  Report Type: Spontaneous
  Country: US (occurrence: US)
  Receive Date: 20130517
  Receipt Date: 20130706
  Transmission Date: 20140515
  Serious: No
  Sender: FDA-Public Use
  Company Number: US-ASTRAZENECA-2013SE32113

PATIENT
  Age: 22185 Day
  Sex: Female
  Weight: 54.4 kg

DRUGS (5)
  1. SYMBICORT [Suspect]
     Indication: CHRONIC OBSTRUCTIVE PULMONARY DISEASE
     Dosage: 80/ 4.5MCG 1 PUFF BID
     Route: 055
     Dates: start: 20130408
  2. SYMBICORT [Suspect]
     Indication: BRONCHIOLITIS
     Dosage: 80/ 4.5MCG 1 PUFF BID
     Route: 055
     Dates: start: 20130408
  3. SYMBICORT [Suspect]
     Indication: EMPHYSEMA
     Dosage: 80/ 4.5MCG 1 PUFF BID
     Route: 055
     Dates: start: 20130408
  4. SYMBICORT [Suspect]
     Indication: BRONCHITIS
     Dosage: 80/ 4.5MCG 1 PUFF BID
     Route: 055
     Dates: start: 20130408
  5. SPIRIVA [Concomitant]
     Dates: start: 201304

REACTIONS (3)
  - Dyspnoea [Not Recovered/Not Resolved]
  - Off label use [Unknown]
  - Drug dose omission [Unknown]
